FAERS Safety Report 15808963 (Version 2)
Quarter: 2019Q1

REPORT INFORMATION
  Report Type: Report from Study
  Country: US (occurrence: US)
  Receive Date: 20190110
  Receipt Date: 20190219
  Transmission Date: 20190417
  Serious: Yes (Other)
  Sender: FDA-Public Use
  Company Number: US-BAUSCH-BL-2019-000873

PATIENT
  Sex: Female
  Weight: 113.5 kg

DRUGS (3)
  1. LACTULOSE. [Concomitant]
     Active Substance: LACTULOSE
     Indication: PRODUCT USED FOR UNKNOWN INDICATION
     Route: 065
  2. XIFAXAN [Suspect]
     Active Substance: RIFAXIMIN
     Indication: HEPATIC CIRRHOSIS
     Dosage: END OF 2017
     Route: 065
     Dates: start: 2017, end: 2017
  3. XIFAXAN [Suspect]
     Active Substance: RIFAXIMIN
     Dosage: IN THE END OF JAN
     Route: 065
     Dates: start: 201901

REACTIONS (8)
  - Lethargy [Recovered/Resolved]
  - Therapy cessation [Recovered/Resolved]
  - Memory impairment [Recovered/Resolved]
  - Rectal haemorrhage [Recovered/Resolved]
  - Dizziness [Recovered/Resolved]
  - Frequent bowel movements [Recovered/Resolved]
  - Insurance issue [Recovered/Resolved]
  - Inability to afford medication [Recovered/Resolved]

NARRATIVE: CASE EVENT DATE: 2018
